FAERS Safety Report 5970502-5 (Version None)
Quarter: 2008Q4

REPORT INFORMATION
  Report Type: 
  Country: None (occurrence: None)
  Receive Date: 20081126
  Receipt Date: 20081027
  Transmission Date: 20090506
  Serious: No
  Sender: FDA-Public Use
  Company Number: US-ABBOTT-08P-163-0484217-00

PATIENT
  Sex: Male

DRUGS (7)
  1. SIMCOR [Suspect]
     Indication: DRUG USE FOR UNKNOWN INDICATION
     Dosage: 500/20MG
     Route: 048
  2. ACETYLSALICYLIC ACID SRT [Concomitant]
     Indication: DRUG USE FOR UNKNOWN INDICATION
  3. CILOSTAZOL [Concomitant]
     Indication: INTERMITTENT CLAUDICATION
  4. PENTOXIFYLLINE [Concomitant]
     Indication: INTERMITTENT CLAUDICATION
  5. DOLOBID [Concomitant]
     Indication: SPINAL OSTEOARTHRITIS
  6. OMEPRAZOLE MAGNESIUM [Concomitant]
     Indication: DRUG USE FOR UNKNOWN INDICATION
  7. MODAFINIL [Concomitant]
     Indication: SLEEP APNOEA SYNDROME
     Dosage: 1/2 TAB

REACTIONS (6)
  - DIARRHOEA [None]
  - FEELING HOT [None]
  - FLUSHING [None]
  - MYALGIA [None]
  - PAIN IN EXTREMITY [None]
  - PRURITUS [None]
